FAERS Safety Report 5227177-2 (Version None)
Quarter: 2007Q1

REPORT INFORMATION
  Report Type: 
  Country: None (occurrence: None)
  Receive Date: 20070120
  Receipt Date: 20061215
  Transmission Date: 20070707
  Serious: Yes (Disabling)
  Sender: FDA-Public Use
  Company Number: ABNYN-06-0705

PATIENT
  Age: 66 Year
  Sex: Female
  Weight: 73 kg

DRUGS (4)
  1. ABRAXANE [Suspect]
     Indication: BREAST CANCER METASTATIC
     Dosage: LAST DOSE RECEIVED PRIOR TO THE ONSET OF EVENT/ 1 DOSE, DRUG DISCONTINUED 10JAN07 (100 MG/M2, WEEKLY
     Route: 042
     Dates: start: 20061211, end: 20070110
  2. AVASTIN [Suspect]
     Indication: BREAST CANCER
     Dosage: (10 MG/KG, EVERY 2 WEEKS), INTRAVENOUS
     Route: 042
     Dates: start: 20061211
  3. DOXIL [Suspect]
     Indication: BREAST CANCER
     Dosage: (3 WEEKS PRIOR TO START OF ABRAXANE AND A), INTRAVENOUS
     Route: 042
     Dates: start: 20061101, end: 20061121
  4. OXYCODONE HCL [Concomitant]

REACTIONS (3)
  - BLISTER [None]
  - HYPERSENSITIVITY [None]
  - PALMAR-PLANTAR ERYTHRODYSAESTHESIA SYNDROME [None]
